FAERS Safety Report 19135094 (Version 1)
Quarter: 2021Q2

REPORT INFORMATION
  Report Type: Report from Study
  Country: GB (occurrence: GB)
  Receive Date: 20210414
  Receipt Date: 20210414
  Transmission Date: 20210717
  Serious: Yes (Other)
  Sender: FDA-Public Use
  Company Number: GB-JNJFOC-20210359683

PATIENT
  Age: 59 Year
  Sex: Male

DRUGS (4)
  1. ABIRATERONE ACETATE. [Suspect]
     Active Substance: ABIRATERONE ACETATE
     Indication: PROSTATE CANCER
     Route: 048
     Dates: start: 20201225, end: 20210407
  2. PREDNISOLONE. [Concomitant]
     Active Substance: PREDNISOLONE
     Indication: PROSTATE CANCER
     Route: 048
     Dates: start: 20201225
  3. TAMSULOSIN [Concomitant]
     Active Substance: TAMSULOSIN
     Indication: MICTURITION DISORDER
     Route: 065
  4. DEGARELIX [Concomitant]
     Active Substance: DEGARELIX
     Indication: HORMONE THERAPY
     Route: 065
     Dates: start: 20201110

REACTIONS (3)
  - Abdominal pain [Unknown]
  - Alanine aminotransferase increased [Unknown]
  - Nausea [Unknown]

NARRATIVE: CASE EVENT DATE: 20210325
